FAERS Safety Report 11274520 (Version 5)
Quarter: 2018Q1

REPORT INFORMATION
  Report Type: Spontaneous
  Country: CH (occurrence: AT)
  Receive Date: 20150715
  Receipt Date: 20180216
  Transmission Date: 20180508
  Serious: Yes (Disabling)
  Sender: FDA-Public Use
  Company Number: CH-LPDUSPRD-20150542

PATIENT
  Age: 42 Year
  Sex: Male

DRUGS (10)
  1. HUMIRA [Concomitant]
     Active Substance: ADALIMUMAB
     Dosage: 40 MG, 1 IN 1 WK
     Route: 058
  2. FERINJECT [Suspect]
     Active Substance: FERRIC CARBOXYMALTOSE
     Dosage: 50 MG, 1 IN 8 WKS
     Route: 041
     Dates: start: 201209, end: 201406
  3. ZOLEDRONIC ACID [Concomitant]
     Active Substance: ZOLEDRONIC ACID
     Dosage: 5 MG
     Route: 065
  4. PENTASA [Concomitant]
     Active Substance: MESALAMINE
     Dosage: 4000 MG, 1 IN 1 D
     Route: 048
  5. VENOFER [Suspect]
     Active Substance: IRON SUCROSE
     Dosage: UNKNOWN
     Route: 042
  6. ADALIMUMAB [Concomitant]
     Active Substance: ADALIMUMAB
     Dosage: UNKNOWN
     Route: 065
  7. ERGOCALCIFEROL. [Concomitant]
     Active Substance: ERGOCALCIFEROL
     Dosage: UNKNOWN
     Route: 065
  8. CALCIUM GLUCONATE. [Concomitant]
     Active Substance: CALCIUM GLUCONATE
     Dosage: UNKNOWN
     Route: 065
  9. BUDO-SAN [Concomitant]
     Dosage: 3 MG, 2 IN 1 D
     Route: 048
  10. AKTIFERRIN [Suspect]
     Active Substance: FERROUS SULFATE\SERINE
     Dosage: UNKNOWN
     Route: 048

REACTIONS (7)
  - Urine phosphorus increased [Recovering/Resolving]
  - Product preparation error [Recovering/Resolving]
  - Foot fracture [Recovered/Resolved with Sequelae]
  - Bone marrow oedema [Recovering/Resolving]
  - Serum ferritin increased [Recovering/Resolving]
  - Blood alkaline phosphatase increased [Recovering/Resolving]
  - Hypophosphataemia [Unknown]

NARRATIVE: CASE EVENT DATE: 201301
